FAERS Safety Report 9378728 (Version 1)
Quarter: 2013Q3

REPORT INFORMATION
  Report Type: Spontaneous
  Country: US (occurrence: US)
  Receive Date: 20130702
  Receipt Date: 20130702
  Transmission Date: 20140515
  Serious: No
  Sender: FDA-Public Use
  Company Number: US-BIOGENIDEC-2013BI059475

PATIENT
  Sex: Female

DRUGS (1)
  1. AVONEX [Suspect]
     Indication: MULTIPLE SCLEROSIS
     Route: 030
     Dates: start: 20130621

REACTIONS (5)
  - Memory impairment [Unknown]
  - Nervousness [Unknown]
  - Pain [Unknown]
  - Fatigue [Unknown]
  - Muscle spasms [Unknown]
